FAERS Safety Report 11245697 (Version 1)
Quarter: 2015Q3

REPORT INFORMATION
  Report Type: Spontaneous
  Country: US (occurrence: US)
  Receive Date: 20150707
  Receipt Date: 20150707
  Transmission Date: 20151125
  Serious: Yes (Hospitalization, Other)
  Sender: FDA-Public Use
  Company Number: US-GLAXOSMITHKLINE-US2015GSK097488

PATIENT
  Age: 75 Year
  Sex: Male
  Weight: 66 kg

DRUGS (8)
  1. NIFEDIPINE ER [Interacting]
     Active Substance: NIFEDIPINE
     Dosage: UNK
     Route: 048
     Dates: start: 20150427
  2. ERGOCALCIFEROL. [Concomitant]
     Active Substance: ERGOCALCIFEROL
  3. NIFEDIPINE ER [Interacting]
     Active Substance: NIFEDIPINE
     Indication: HYPERTENSION
     Dosage: UNK, QD
     Route: 048
     Dates: end: 20150426
  4. VIEKIRA PAK [Interacting]
     Active Substance: DASABUVIR\OMBITASVIR\PARITAPREVIR\RITONAVIR
     Indication: HEPATITIS C
     Dosage: 3 AND 1, BID
     Route: 048
     Dates: start: 20150401, end: 20150402
  5. COREG CR [Suspect]
     Active Substance: CARVEDILOL PHOSPHATE
     Indication: HYPERTENSION
     Dosage: UNK, QD
     Dates: end: 20150426
  6. COREG CR [Interacting]
     Active Substance: CARVEDILOL PHOSPHATE
     Dosage: UNK, QD
     Route: 048
     Dates: start: 20150427
  7. VIEKIRA PAK [Interacting]
     Active Substance: DASABUVIR\OMBITASVIR\PARITAPREVIR\RITONAVIR
     Dosage: UNK
     Dates: start: 20150425, end: 20150425
  8. ASPIRIN (BABY) [Concomitant]
     Active Substance: ASPIRIN

REACTIONS (7)
  - Withdrawal hypertension [Recovered/Resolved]
  - Hypotension [Recovered/Resolved]
  - Pneumonia [Recovered/Resolved]
  - Pyrexia [Recovered/Resolved]
  - Central venous catheterisation [Unknown]
  - Drug interaction [Unknown]
  - White blood cell count increased [Recovered/Resolved]

NARRATIVE: CASE EVENT DATE: 201504
